FAERS Safety Report 8838961 (Version 2)
Quarter: 2012Q4

REPORT INFORMATION
  Report Type: 
  Country: US (occurrence: US)
  Receive Date: 20121015
  Receipt Date: 20121029
  Transmission Date: 20130627
  Serious: Yes (Other)
  Sender: FDA-Public Use
  Company Number: US-BIOGENIDEC-2005BI014945

PATIENT
  Age: 53 Year
  Sex: Female

DRUGS (5)
  1. AVONEX [Suspect]
     Indication: MULTIPLE SCLEROSIS
     Route: 030
     Dates: start: 20000601
  2. ZOCOR [Concomitant]
  3. TAMOXIFEN [Concomitant]
  4. EFFEXOR [Concomitant]
  5. LIQUID PROTEIN SUPPLEMENTS [Concomitant]

REACTIONS (7)
  - Breast cancer stage I [Recovered/Resolved]
  - Abdominal discomfort [Recovered/Resolved]
  - Bursitis [Not Recovered/Not Resolved]
  - Rash [Not Recovered/Not Resolved]
  - Injection site bruising [Recovered/Resolved]
  - Asthenia [Recovered/Resolved]
  - Injection site reaction [Recovered/Resolved]
